FAERS Safety Report 6304338-2 (Version None)
Quarter: 2009Q3

REPORT INFORMATION
  Report Type: 
  Country: None (occurrence: None)
  Receive Date: 20090811
  Receipt Date: 20090731
  Transmission Date: 20100115
  Serious: Yes (Other)
  Sender: FDA-Public Use
  Company Number: SE-BAYER-200927055GPV

PATIENT
  Age: 47 Year
  Sex: Female

DRUGS (4)
  1. MIRENA [Suspect]
     Indication: ENDOMETRIOSIS
     Dosage: SECOND MIRENA PRESCRIBED, UNKNOWN IF INSERTED OR NOT
     Route: 015
  2. MIRENA [Suspect]
     Route: 015
     Dates: start: 20081101, end: 20090401
  3. CYMBALTA [Concomitant]
     Indication: DEPRESSION
     Route: 048
     Dates: start: 20090101
  4. ATARAX [Concomitant]
     Indication: ANXIETY DISORDER
     Route: 048
     Dates: start: 20060101

REACTIONS (3)
  - IUCD COMPLICATION [None]
  - MENORRHAGIA [None]
  - UTERINE LEIOMYOMA [None]
